FAERS Safety Report 11412311 (Version 2)
Quarter: 2015Q4

REPORT INFORMATION
  Report Type: Spontaneous
  Country: GU (occurrence: GU)
  Receive Date: 20150824
  Receipt Date: 20151013
  Transmission Date: 20160304
  Serious: No
  Sender: FDA-Public Use
  Company Number: GU-JNJFOC-20150808114

PATIENT
  Age: 67 Year
  Sex: Female
  Weight: 44 kg

DRUGS (2)
  1. WOMENS ROGAINE UNSCENTED [Suspect]
     Active Substance: MINOXIDIL
     Route: 061
  2. WOMENS ROGAINE UNSCENTED [Suspect]
     Active Substance: MINOXIDIL
     Indication: ALOPECIA
     Dosage: 1 CAPFUL, 1 TIME PER DAY
     Route: 061
     Dates: start: 20150211

REACTIONS (4)
  - Drug administered at inappropriate site [Unknown]
  - Overdose [Unknown]
  - Product lot number issue [Unknown]
  - Product expiration date issue [Unknown]
